FAERS Safety Report 8340261-X (Version None)
Quarter: 2012Q2

REPORT INFORMATION
  Report Type: 
  Country: None (occurrence: None)
  Receive Date: 20120507
  Receipt Date: 20120502
  Transmission Date: 20120825
  Serious: Yes (Hospitalization)
  Sender: FDA-Public Use
  Company Number: PHHY2012BE037464

PATIENT
  Sex: Female

DRUGS (5)
  1. AMINOPYRIDINE [Concomitant]
     Indication: MULTIPLE SCLEROSIS
     Dosage: 30 MG, DAILY
     Dates: start: 20100101
  2. CATAFLAM [Concomitant]
     Indication: OSTEOARTHRITIS
     Dosage: 10 MG, DAILY
     Dates: start: 20110101
  3. LEVOTHYROXINE SODIUM [Concomitant]
     Indication: HYPOTHYROIDISM
     Dosage: 75 UG, DAILY
     Dates: start: 20050101
  4. GILENYA [Suspect]
     Indication: MULTIPLE SCLEROSIS
     Dosage: 0.5 MG, DAILY
     Route: 048
     Dates: start: 20110831
  5. BACLOFEN [Concomitant]
     Indication: MUSCLE SPASTICITY
     Dosage: 30 MG, DAILY
     Dates: start: 20100101

REACTIONS (6)
  - NEUROLOGICAL SYMPTOM [None]
  - GASTROINTESTINAL PAIN [None]
  - CONSTIPATION [None]
  - PYREXIA [None]
  - CYSTITIS [None]
  - APPENDICITIS [None]
